FAERS Safety Report 5044777-3 (Version None)
Quarter: 2006Q3

REPORT INFORMATION
  Report Type: 
  Country: None (occurrence: None)
  Receive Date: 20060707
  Receipt Date: 20060628
  Transmission Date: 20061208
  Serious: Yes (Other)
  Sender: FDA-Public Use
  Company Number: FR-JNJFOC-20060604628

PATIENT
  Sex: Female
  Weight: 70 kg

DRUGS (2)
  1. RISPERDAL CONSTA [Suspect]
     Indication: PSYCHOTIC DISORDER
     Route: 030
  2. DEPAKOTE [Suspect]
     Indication: AFFECTIVE DISORDER
     Route: 048

REACTIONS (1)
  - THROMBOCYTOPENIA [None]
